FAERS Safety Report 6538039-2 (Version None)
Quarter: 2010Q1

REPORT INFORMATION
  Report Type: 
  Country: None (occurrence: None)
  Receive Date: 20100114
  Receipt Date: 20100106
  Transmission Date: 20100710
  Serious: Yes (Hospitalization)
  Sender: FDA-Public Use
  Company Number: FR-ASTRAZENECA-2010SE00501

PATIENT
  Age: 0 Week
  Sex: Female

DRUGS (6)
  1. NEXIUM [Suspect]
     Route: 064
     Dates: start: 20080704, end: 20080715
  2. DOTAREM [Suspect]
     Route: 064
     Dates: start: 20080630, end: 20080630
  3. METHYLPREDNISOLONE 4MG TAB [Suspect]
     Route: 064
     Dates: start: 20080704, end: 20080707
  4. SOLUPRED [Suspect]
     Route: 064
     Dates: start: 20080707, end: 20080715
  5. NORLEVO [Suspect]
     Indication: CONTRACEPTION
     Route: 064
     Dates: start: 20080619, end: 20080619
  6. ATENOLOL [Concomitant]
     Indication: HYPERTENSION
     Route: 065

REACTIONS (3)
  - FOETAL GROWTH RETARDATION [None]
  - PREMATURE BABY [None]
  - SMALL FOR DATES BABY [None]
